FAERS Safety Report 24854345 (Version 2)
Quarter: 2025Q2

REPORT INFORMATION
  Report Type: Report from Study
  Country: CA (occurrence: CA)
  Receive Date: 20250117
  Receipt Date: 20250417
  Transmission Date: 20250717
  Serious: Yes (Other)
  Sender: BIOGEN
  Company Number: CA-BIOGEN-2024BI01259977

PATIENT
  Sex: Female

DRUGS (1)
  1. TECFIDERA [Suspect]
     Active Substance: DIMETHYL FUMARATE
     Indication: Multiple sclerosis
     Route: 050
     Dates: start: 20181017, end: 20250407

REACTIONS (6)
  - Hydrocephalus [Unknown]
  - Sciatica [Unknown]
  - Multiple sclerosis [Unknown]
  - Pain [Unknown]
  - Loss of therapeutic response [Unknown]
  - Expanded disability status scale score increased [Unknown]
